FAERS Safety Report 9225320 (Version 2)
Quarter: 2013Q2

REPORT INFORMATION
  Report Type: Report from Study
  Country: AU (occurrence: AU)
  Receive Date: 20130411
  Receipt Date: 20130522
  Transmission Date: 20140414
  Serious: Yes (Hospitalization)
  Sender: FDA-Public Use
  Company Number: PHHY2013AU033892

PATIENT
  Age: 41 Year
  Sex: Female
  Weight: 100 kg

DRUGS (5)
  1. CLOZARIL [Suspect]
     Dosage: 400 MG, UNK
     Dates: start: 19970203
  2. CLOZARIL [Suspect]
     Dosage: UNK UKN, RECOMMENCED
  3. OMEPRAZOLE [Concomitant]
     Indication: GASTROOESOPHAGEAL REFLUX DISEASE
     Dosage: 20 MG, BID
     Route: 048
     Dates: start: 20130318
  4. FLUPENTHIXOL [Concomitant]
     Indication: SCHIZOPHRENIA
     Dosage: UNK (2/52)
     Route: 030
     Dates: start: 20130222
  5. IMIPRAMINE [Concomitant]
     Indication: AFFECTIVE DISORDER
     Dosage: 75 MG, (NOCTE)

REACTIONS (3)
  - Psychotic disorder [Recovering/Resolving]
  - Mental impairment [Recovering/Resolving]
  - Dissociation [Recovering/Resolving]
